FAERS Safety Report 10885360 (Version 1)
Quarter: 2015Q1

REPORT INFORMATION
  Report Type: Report from Study
  Country: US (occurrence: US)
  Receive Date: 20150304
  Receipt Date: 20150304
  Transmission Date: 20150721
  Serious: Yes (Other)
  Sender: FDA-Public Use
  Company Number: US-AMGEN-USASL2015018868

PATIENT
  Age: 63 Year
  Sex: Female

DRUGS (1)
  1. ENBREL [Suspect]
     Active Substance: ETANERCEPT
     Indication: RHEUMATOID ARTHRITIS
     Dosage: 50 MG, QWK
     Route: 065
     Dates: start: 20140301, end: 20150214

REACTIONS (11)
  - Chest discomfort [Not Recovered/Not Resolved]
  - Sinus congestion [Recovered/Resolved]
  - Pharyngeal erythema [Recovered/Resolved]
  - Musculoskeletal disorder [Not Recovered/Not Resolved]
  - Respiratory tract congestion [Recovered/Resolved]
  - Upper respiratory tract infection [Not Recovered/Not Resolved]
  - Dyspnoea [Recovered/Resolved]
  - Middle ear effusion [Recovered/Resolved]
  - Blood pressure increased [Not Recovered/Not Resolved]
  - Pharyngitis streptococcal [Recovered/Resolved]
  - Arthralgia [Not Recovered/Not Resolved]

NARRATIVE: CASE EVENT DATE: 201410
